FAERS Safety Report 8805900 (Version 1)
Quarter: 2012Q4

REPORT INFORMATION
  Report Type: Spontaneous
  Country: US (occurrence: None)
  Receive Date: 20120917
  Receipt Date: 20120917
  Transmission Date: 20130627
  Serious: Yes (Hospitalization, Other)
  Sender: FDA-Public Use
  Company Number: 2012-0799

PATIENT
  Sex: Female

DRUGS (1)
  1. KYPROLIS [Suspect]
     Indication: MULTIPLE MYELOMA
     Route: 042
     Dates: start: 201208, end: 20120822

REACTIONS (4)
  - Asthenia [None]
  - Anaemia [None]
  - Bundle branch block left [None]
  - Ejection fraction decreased [None]
